FAERS Safety Report 9602763 (Version 1)
Quarter: 2013Q4

REPORT INFORMATION
  Report Type: Spontaneous
  Country: FR (occurrence: None)
  Receive Date: 20131003
  Receipt Date: 20131003
  Transmission Date: 20140711
  Serious: Yes (Hospitalization)
  Sender: FDA-Public Use
  Company Number: 1891769

PATIENT
  Age: 55 Year
  Sex: Male

DRUGS (4)
  1. (CARBOPLATIN) [Suspect]
     Indication: CHEMOTHERAPY
     Route: 042
     Dates: start: 20120604, end: 20120604
  2. TAXOL [Suspect]
     Indication: ADENOCARCINOMA
     Route: 042
     Dates: start: 20120604, end: 20120611
  3. (AMAREL) [Concomitant]
  4. (SEVREDOL) [Concomitant]

REACTIONS (4)
  - Asthenia [None]
  - Dyspnoea [None]
  - Interstitial lung disease [None]
  - Bronchiolitis [None]
